FAERS Safety Report 8818542 (Version 1)
Quarter: 2012Q4

REPORT INFORMATION
  Report Type: Spontaneous
  Country: US (occurrence: None)
  Receive Date: 20121004
  Receipt Date: 20121004
  Transmission Date: 20130627
  Serious: Yes (Death)
  Sender: FDA-Public Use
  Company Number: None

PATIENT
  Sex: Female
  Weight: 66.23 kg

DRUGS (1)
  1. ZEMAIRA [Suspect]
     Dosage: (120 mg/kg 1x/2 weeks, { 1 hour Intravenous (not otherwise specified))
     Route: 042

REACTIONS (2)
  - Respiratory failure [None]
  - Multiple sclerosis [None]
